FAERS Safety Report 5999071-0 (Version None)
Quarter: 2008Q4

REPORT INFORMATION
  Report Type: 
  Country: None (occurrence: None)
  Receive Date: 20081215
  Receipt Date: 20081203
  Transmission Date: 20090506
  Serious: Yes (Hospitalization)
  Sender: FDA-Public Use
  Company Number: CA-RANBAXY-2008RR-19723

PATIENT
  Age: 22 Month
  Sex: Female
  Weight: 10.6 kg

DRUGS (11)
  1. CAPTOPRIL [Suspect]
     Dosage: 10 MG, TID
  2. DIGOXIN [Suspect]
     Dosage: 60 UG, QD
  3. CARVEDILOL [Suspect]
     Dosage: 4.5 MG, BID
  4. FUROSEMIDE [Suspect]
     Dosage: 5 MG, BID
  5. AMIODARONE HCL [Suspect]
     Dosage: 50 MG, QD
  6. REMIFENTANIL [Suspect]
     Indication: ANAESTHESIA
     Dosage: 1 UG/KG, UNK
  7. SEVOFLURANE [Suspect]
     Indication: ANAESTHESIA
     Route: 055
  8. MIDAZOLAM HCL [Concomitant]
     Indication: ANAESTHESIA
     Dosage: 5 MG, UNK
     Route: 048
  9. FENTANYL-100 [Concomitant]
     Indication: ANAESTHESIA
  10. KETAMINE HCL [Concomitant]
     Indication: ANAESTHESIA
     Dosage: 1 MG/KG, UNK
  11. ACETAMINOPHEN [Concomitant]
     Dosage: 300 MG, UNK

REACTIONS (1)
  - CIRCULATORY COLLAPSE [None]
